FAERS Safety Report 4707296-7 (Version None)
Quarter: 2005Q3

REPORT INFORMATION
  Report Type: 
  Country: None (occurrence: None)
  Receive Date: 20050701
  Receipt Date: 20050701
  Transmission Date: 20060218
  Serious: Yes (Other)
  Sender: FDA-Public Use
  Company Number: None

PATIENT
  Sex: Male
  Weight: 109.3169 kg

DRUGS (2)
  1. HYDROCODONE /BIT/APAP TABS WATSON 185/MERCK MEDCO [Suspect]
     Indication: VERTEBRAL INJURY
     Dosage: 1 6 TO 8 HR PRN ORAL
     Route: 048
     Dates: start: 20050524, end: 20050824
  2. CARISOPRODOL [Suspect]
     Indication: VERTEBRAL INJURY
     Dosage: 1 6 TO 8 HR PRN ORAL
     Route: 048
     Dates: start: 20050524, end: 20050824

REACTIONS (2)
  - DRUG INEFFECTIVE [None]
  - PHARMACEUTICAL PRODUCT COMPLAINT [None]
